FAERS Safety Report 11720474 (Version 1)
Quarter: 2015Q4

REPORT INFORMATION
  Report Type: Spontaneous
  Country: US (occurrence: US)
  Receive Date: 20151110
  Receipt Date: 20151110
  Transmission Date: 20160304
  Serious: No
  Sender: FDA-Public Use
  Company Number: US-CREALTA PHARMACEUTICALS-2015S1000014

PATIENT
  Age: 44 Year
  Sex: Male
  Weight: 99.88 kg

DRUGS (16)
  1. KRYSTEXXA [Suspect]
     Active Substance: PEGLOTICASE
     Route: 042
  2. ALPRENOLOL [Concomitant]
     Indication: PRODUCT USED FOR UNKNOWN INDICATION
     Route: 048
  3. NAPROXEN. [Concomitant]
     Active Substance: NAPROXEN
     Indication: PRODUCT USED FOR UNKNOWN INDICATION
     Dosage: W/ GOUT FLARE
  4. KRYSTEXXA [Suspect]
     Active Substance: PEGLOTICASE
     Indication: GOUT
     Route: 042
     Dates: start: 20141113
  5. KRYSTEXXA [Suspect]
     Active Substance: PEGLOTICASE
     Route: 042
  6. KRYSTEXXA [Suspect]
     Active Substance: PEGLOTICASE
     Route: 042
  7. ALLEGRA [Concomitant]
     Active Substance: FEXOFENADINE HYDROCHLORIDE
     Dosage: BEFORE INFUSION
     Route: 048
  8. KRYSTEXXA [Suspect]
     Active Substance: PEGLOTICASE
     Route: 042
  9. COLCHICINE. [Concomitant]
     Active Substance: COLCHICINE
     Indication: GOUT
     Route: 048
  10. MOBIC [Concomitant]
     Active Substance: MELOXICAM
     Indication: PRODUCT USED FOR UNKNOWN INDICATION
     Route: 048
  11. NAPROXEN. [Concomitant]
     Active Substance: NAPROXEN
  12. KRYSTEXXA [Suspect]
     Active Substance: PEGLOTICASE
     Route: 042
  13. KRYSTEXXA [Suspect]
     Active Substance: PEGLOTICASE
     Route: 042
  14. KRYSTEXXA [Suspect]
     Active Substance: PEGLOTICASE
     Route: 042
  15. KRYSTEXXA [Suspect]
     Active Substance: PEGLOTICASE
     Route: 042
  16. ALLEGRA [Concomitant]
     Active Substance: FEXOFENADINE HYDROCHLORIDE
     Indication: PRODUCT USED FOR UNKNOWN INDICATION
     Route: 048

REACTIONS (1)
  - Therapeutic response decreased [Recovered/Resolved]

NARRATIVE: CASE EVENT DATE: 20150402
